FAERS Safety Report 21230871 (Version 1)
Quarter: 2022Q3

REPORT INFORMATION
  Report Type: Spontaneous
  Country: ES (occurrence: ES)
  Receive Date: 20220819
  Receipt Date: 20220819
  Transmission Date: 20221026
  Serious: Yes (Other)
  Sender: FDA-Public Use
  Company Number: None

PATIENT
  Sex: Female

DRUGS (1)
  1. COPAXONE [Suspect]
     Active Substance: GLATIRAMER ACETATE
     Indication: Product used for unknown indication
     Dosage: 28 PRE-FILLED SYRINGES OF 1 ML, STRENGTH : 20 MG/ ML, THERAPY END DATE : NASK
     Route: 065
     Dates: start: 2022

REACTIONS (4)
  - Nausea [Unknown]
  - Chills [Unknown]
  - Dyspnoea [Unknown]
  - Musculoskeletal chest pain [Unknown]

NARRATIVE: CASE EVENT DATE: 20220101
